FAERS Safety Report 16854116 (Version 1)
Quarter: 2019Q3

REPORT INFORMATION
  Report Type: Spontaneous
  Country: CH (occurrence: CH)
  Receive Date: 20190926
  Receipt Date: 20190926
  Transmission Date: 20191005
  Serious: Yes (Death, Other)
  Sender: FDA-Public Use
  Company Number: CH-SA-2019SA265884

PATIENT
  Sex: Male

DRUGS (1)
  1. DUPIXENT [Suspect]
     Active Substance: DUPILUMAB
     Dosage: INJECTED 4 SYRINGES OF DUPIXENT AT THE FIRST DOSE

REACTIONS (2)
  - Myocardial infarction [Fatal]
  - Extra dose administered [Unknown]
